FAERS Safety Report 5620148-3 (Version None)
Quarter: 2008Q1

REPORT INFORMATION
  Report Type: 
  Country: None (occurrence: None)
  Receive Date: 20080208
  Receipt Date: 20080130
  Transmission Date: 20080703
  Serious: Yes (Other)
  Sender: FDA-Public Use
  Company Number: CH-ROCHE-495830

PATIENT
  Age: 14 Year
  Sex: Female

DRUGS (2)
  1. ROACCUTANE [Suspect]
     Indication: ACNE
     Route: 048
     Dates: start: 20070101, end: 20070320
  2. YASMIN [Suspect]
     Indication: CONTRACEPTION
     Dosage: FREQUENCY CYCLIC.
     Route: 048
     Dates: end: 20070404

REACTIONS (1)
  - ABORTION INDUCED [None]
